FAERS Safety Report 6166170-2 (Version None)
Quarter: 2009Q2

REPORT INFORMATION
  Report Type: 
  Country: None (occurrence: None)
  Receive Date: 20090422
  Receipt Date: 20090422
  Transmission Date: 20091009
  Serious: Yes (Other)
  Sender: FDA-Public Use
  Company Number: None

PATIENT
  Age: 77 Year
  Sex: Male
  Weight: 82.5 kg

DRUGS (1)
  1. IMMUNE GLOBULIN (HUMAN) [Suspect]
     Indication: IMMUNODEFICIENCY
     Dosage: 36 GM OTHER IV
     Route: 042
     Dates: start: 20090330, end: 20090331

REACTIONS (11)
  - CHILLS [None]
  - COUGH [None]
  - CYANOSIS [None]
  - DYSPNOEA [None]
  - ERYTHEMA [None]
  - FEELING COLD [None]
  - HAEMOPTYSIS [None]
  - HYPERTENSION [None]
  - REFUSAL OF TREATMENT BY PATIENT [None]
  - RESPIRATORY RATE INCREASED [None]
  - WHEEZING [None]
